FAERS Safety Report 8582554-7 (Version None)
Quarter: 2012Q3

REPORT INFORMATION
  Report Type: 
  Country: None (occurrence: None)
  Receive Date: 20120809
  Receipt Date: 20120112
  Transmission Date: 20120928
  Serious: Yes (Hospitalization)
  Sender: FDA-Public Use
  Company Number: US-ROCHE-1094987

PATIENT
  Sex: Male

DRUGS (3)
  1. XOLAIR [Suspect]
     Indication: ASTHMA
     Dates: start: 20080528, end: 20090406
  2. TIOTROPIUM BROMIDE [Concomitant]
  3. XOLAIR [Suspect]
     Indication: HYPERSENSITIVITY

REACTIONS (5)
  - THERAPEUTIC PRODUCT INEFFECTIVE [None]
  - CONDITION AGGRAVATED [None]
  - DYSPNOEA [None]
  - SLEEP DISORDER [None]
  - ASTHMA [None]
